FAERS Safety Report 21659888 (Version 1)
Quarter: 2022Q4

REPORT INFORMATION
  Report Type: Other
  Country: None (occurrence: TH)
  Receive Date: 20221130
  Receipt Date: 20221130
  Transmission Date: 20230113
  Serious: Yes (Hospitalization)
  Sender: FDA-Public Use
  Company Number: TH-MLV Pharma LLC-2135370

PATIENT
  Age: 61 Year
  Sex: Female

DRUGS (3)
  1. ROPINIROLE HYDROCHLORIDE [Suspect]
     Active Substance: ROPINIROLE HYDROCHLORIDE
     Indication: Parkinson^s disease
     Route: 065
  2. BENSERAZIDE\LEVODOPA [Suspect]
     Active Substance: BENSERAZIDE\LEVODOPA
     Route: 065
  3. ENTACAPONE [Suspect]
     Active Substance: ENTACAPONE
     Route: 065

REACTIONS (2)
  - Dyskinesia hyperpyrexia syndrome [Recovered/Resolved]
  - Acute kidney injury [Recovered/Resolved]
